FAERS Safety Report 6577938-2 (Version None)
Quarter: 2010Q1

REPORT INFORMATION
  Report Type: 
  Country: None (occurrence: None)
  Receive Date: 20100211
  Receipt Date: 20100202
  Transmission Date: 20100710
  Serious: Yes (Hospitalization)
  Sender: FDA-Public Use
  Company Number: FR-BAYER-201014789GPV

PATIENT
  Age: 56 Year
  Sex: Male

DRUGS (5)
  1. NEXAVAR [Suspect]
     Indication: DRUG USE FOR UNKNOWN INDICATION
  2. RIFADIN [Concomitant]
  3. TARDYFERON [Concomitant]
  4. BARACLUDE [Concomitant]
     Dosage: 1 MG
  5. CELEBREX [Concomitant]
     Dates: end: 20091120

REACTIONS (2)
  - BLOOD CREATINE INCREASED [None]
  - DIARRHOEA [None]
